FAERS Safety Report 4944291-7 (Version None)
Quarter: 2006Q1

REPORT INFORMATION
  Report Type: 
  Country: None (occurrence: None)
  Receive Date: 20060315
  Receipt Date: 20060302
  Transmission Date: 20060701
  Serious: Yes (Hospitalization)
  Sender: FDA-Public Use
  Company Number: IE-GLAXOSMITHKLINE-B0415308A

PATIENT
  Age: 73 Year
  Sex: Female

DRUGS (1)
  1. AUGMENTIN '125' [Suspect]
     Indication: CHRONIC OBSTRUCTIVE PULMONARY DISEASE
     Dosage: 1.2G SINGLE DOSE
     Route: 042
     Dates: start: 20060215, end: 20060215

REACTIONS (2)
  - DYSPNOEA [None]
  - RESPIRATORY FAILURE [None]
